FAERS Safety Report 9490404 (Version 1)
Quarter: 2013Q3

REPORT INFORMATION
  Report Type: Spontaneous
  Country: US (occurrence: None)
  Receive Date: 20130827
  Receipt Date: 20130827
  Transmission Date: 20140515
  Serious: No
  Sender: FDA-Public Use
  Company Number: None

PATIENT
  Age: 76 None
  Sex: Male

DRUGS (9)
  1. SYMBICORT [Suspect]
     Indication: CHRONIC OBSTRUCTIVE PULMONARY DISEASE
     Dosage: 160/4.5 2 PUFFS TWICE DAILY BY MOUTH
     Route: 048
     Dates: end: 20130812
  2. METFORMIN HCL [Concomitant]
  3. PRAVASTATIN [Concomitant]
  4. TAMASULOSIN HCL [Concomitant]
  5. RAMIPROL [Concomitant]
  6. METOPROL SUCCER [Concomitant]
  7. RANEXA [Concomitant]
  8. BAYER [Concomitant]
  9. BETHAMETHAZONE VALERATE CREAM [Concomitant]

REACTIONS (1)
  - Headache [None]
